FAERS Safety Report 5697915-3 (Version None)
Quarter: 2008Q2

REPORT INFORMATION
  Report Type: 
  Country: None (occurrence: None)
  Receive Date: 20080408
  Receipt Date: 20080328
  Transmission Date: 20081010
  Serious: Yes (Death, Hospitalization)
  Sender: FDA-Public Use
  Company Number: JP-ROCHE-556306

PATIENT
  Sex: Male

DRUGS (1)
  1. XELODA [Suspect]
     Indication: COLON CANCER
     Dosage: DRUG NAME: XELODA 300.
     Route: 048
     Dates: start: 20080214, end: 20080320

REACTIONS (1)
  - PANCYTOPENIA [None]
